FAERS Safety Report 7708740-3 (Version None)
Quarter: 2011Q3

REPORT INFORMATION
  Report Type: 
  Country: None (occurrence: None)
  Receive Date: 20110825
  Receipt Date: 20110825
  Transmission Date: 20111222
  Serious: No
  Sender: FDA-Public Use
  Company Number: None

PATIENT
  Sex: Male
  Weight: 12.246 kg

DRUGS (1)
  1. HOMEOPATHICTEETHING TABLETS (OTC) [Suspect]
     Indication: TEETHING
     Dosage: 2-3 TABS
     Route: 048
     Dates: start: 20110821, end: 20110823

REACTIONS (6)
  - ABNORMAL BEHAVIOUR [None]
  - FLATULENCE [None]
  - IRRITABILITY [None]
  - DIARRHOEA [None]
  - ABDOMINAL DISCOMFORT [None]
  - RESTLESSNESS [None]
